FAERS Safety Report 13739244 (Version 1)
Quarter: 2017Q3

REPORT INFORMATION
  Report Type: Spontaneous
  Country: TR (occurrence: TR)
  Receive Date: 20170710
  Receipt Date: 20170710
  Transmission Date: 20171127
  Serious: Yes (Life-Threatening)
  Sender: FDA-Public Use
  Company Number: TR-009507513-1707TUR000717

PATIENT
  Age: 71 Year
  Sex: Male

DRUGS (3)
  1. BRIDION [Suspect]
     Active Substance: SUGAMMADEX
     Indication: ENDOTRACHEAL INTUBATION
     Dosage: 100 MG, VIAL, 1X1
     Dates: start: 20170614, end: 20170614
  2. FLUXATE [Concomitant]
     Dosage: 0.5 (UNKNOWN UNITS), 1X1
     Route: 042
     Dates: start: 20170614, end: 20170614
  3. SULBAKSIT [Concomitant]
     Dosage: 1000 MG, 4X1
     Route: 042
     Dates: start: 20170613, end: 20170615

REACTIONS (3)
  - Pulse abnormal [Recovered/Resolved]
  - Erythema [Recovered/Resolved]
  - Hypotension [Recovered/Resolved]

NARRATIVE: CASE EVENT DATE: 20170614
